FAERS Safety Report 5110807-3 (Version None)
Quarter: 2006Q3

REPORT INFORMATION
  Report Type: 
  Country: None (occurrence: None)
  Receive Date: 20060913
  Receipt Date: 20060831
  Transmission Date: 20061208
  Serious: Yes (Other)
  Sender: FDA-Public Use
  Company Number: 2006BH011614

PATIENT
  Age: 2 Year
  Sex: Male
  Weight: 14.5 kg

DRUGS (3)
  1. RECOMBINATE [Suspect]
     Indication: FACTOR VIII DEFICIENCY
     Dosage: SEE IMAGE
     Dates: start: 20040824, end: 20040830
  2. RECOMBINATE [Suspect]
     Indication: FACTOR VIII DEFICIENCY
     Dosage: SEE IMAGE
     Dates: start: 20060628
  3. RECOMBINATE [Suspect]

REACTIONS (2)
  - DRUG EFFECT DECREASED [None]
  - FACTOR VIII INHIBITION [None]
